FAERS Safety Report 8210538-7 (Version None)
Quarter: 2012Q1

REPORT INFORMATION
  Report Type: 
  Country: None (occurrence: None)
  Receive Date: 20120314
  Receipt Date: 20110304
  Transmission Date: 20120608
  Serious: No
  Sender: FDA-Public Use
  Company Number: US-ASTRAZENECA-2011SE12366

PATIENT

DRUGS (3)
  1. PROTONIX [Concomitant]
  2. PLAVIX [Concomitant]
  3. TOPROL-XL [Suspect]
     Route: 048

REACTIONS (3)
  - PALPITATIONS [None]
  - EXTRASYSTOLES [None]
  - DRUG INEFFECTIVE [None]
